FAERS Safety Report 6791205-3 (Version None)
Quarter: 2010Q2

REPORT INFORMATION
  Report Type: 
  Country: None (occurrence: None)
  Receive Date: 20100624
  Receipt Date: 20100304
  Transmission Date: 20101027
  Serious: No
  Sender: FDA-Public Use
  Company Number: US-BAUSCH-2010BL001219

PATIENT
  Age: 83 Year
  Sex: Female

DRUGS (3)
  1. BRIMONIDINE TARTRATE [Suspect]
     Indication: GLAUCOMA
     Route: 047
     Dates: start: 20100216
  2. SYSTANE [Concomitant]
     Indication: DRY EYE
     Route: 047
  3. SOOTHE XP [Concomitant]
     Indication: DRY EYE
     Route: 047

REACTIONS (3)
  - EYE IRRITATION [None]
  - MEDICATION RESIDUE [None]
  - OCULAR HYPERAEMIA [None]
